FAERS Safety Report 23949683 (Version 8)
Quarter: 2025Q3

REPORT INFORMATION
  Report Type: Report from Study
  Country: CA (occurrence: CA)
  Receive Date: 20240607
  Receipt Date: 20250925
  Transmission Date: 20251021
  Serious: Yes (Other)
  Sender: GILEAD
  Company Number: CA-GLAXOSMITHKLINE-CA2023AMR055898

PATIENT
  Age: 47 Year
  Sex: Female

DRUGS (2)
  1. AMBRISENTAN [Suspect]
     Active Substance: AMBRISENTAN
     Indication: Pulmonary arterial hypertension
     Dosage: 10 MG, QD
     Route: 048
     Dates: start: 20220103
  2. CHLORHEXIDINE [Suspect]
     Active Substance: CHLORHEXIDINE
     Indication: Vascular device infection
     Route: 065

REACTIONS (16)
  - Road traffic accident [Unknown]
  - Pain [Unknown]
  - Limb injury [Unknown]
  - Vascular device infection [Unknown]
  - Cystitis [Unknown]
  - Central venous catheterisation [Unknown]
  - Eye infection [Unknown]
  - Skin reaction [Unknown]
  - Pneumonia [Unknown]
  - Transplant [Unknown]
  - Bronchitis [Unknown]
  - COVID-19 [Recovering/Resolving]
  - Respiratory tract congestion [Not Recovered/Not Resolved]
  - Nasal congestion [Unknown]
  - Hypersensitivity [Unknown]
  - Headache [Unknown]

NARRATIVE: CASE EVENT DATE: 20240501
